FAERS Safety Report 7626906-8 (Version None)
Quarter: 2011Q3

REPORT INFORMATION
  Report Type: 
  Country: None (occurrence: None)
  Receive Date: 20110721
  Receipt Date: 20110713
  Transmission Date: 20111222
  Serious: Yes (Hospitalization, Other)
  Sender: FDA-Public Use
  Company Number: US-BAYER-201029710NA

PATIENT
  Age: 49 Year
  Sex: Female
  Weight: 64.399 kg

DRUGS (3)
  1. YASMIN [Suspect]
     Indication: PRODUCT USED FOR UNKNOWN INDICATION
     Dosage: UNK
     Route: 048
     Dates: start: 20060101, end: 20060701
  2. AMOXICILLIN AND CLAVULANATE POTASSIUM [Concomitant]
  3. TOBRAMYCIN [Concomitant]
     Dosage: 0.3 %, UNK
     Route: 047

REACTIONS (1)
  - PULMONARY EMBOLISM [None]
